FAERS Safety Report 16341086 (Version 2)
Quarter: 2019Q2

REPORT INFORMATION
  Report Type: Spontaneous
  Country: FI (occurrence: FI)
  Receive Date: 20190522
  Receipt Date: 20190605
  Transmission Date: 20190711
  Serious: Yes (Other)
  Sender: FDA-Public Use
  Company Number: FI-ASTRAZENECA-2018SE80702

PATIENT
  Age: 40 Year
  Sex: Female

DRUGS (19)
  1. SEROQUEL [Suspect]
     Active Substance: QUETIAPINE FUMARATE
     Dosage: 500 MG; INTERMITTENT; 500 MG ONCE A DAY, ADDITIONALLY IF NEEDED
     Route: 048
  2. OXAMIN [Suspect]
     Active Substance: OXAZEPAM
     Dosage: 15 MG TABL. IF NECESSARY MAX 45 MG/DAY
     Route: 048
  3. OPAMOX [Suspect]
     Active Substance: OXAZEPAM
     Dosage: 15MG TABL. IF NECESSARY 15-30MG (MAX 30MG/DAY)
     Route: 065
  4. AMLODIPINE [Suspect]
     Active Substance: AMLODIPINE BESYLATE
     Dosage: 1 - INTERMITTENT; 1 TABLET IN EVENING, MAX 20 MG/DAY
     Route: 048
  5. OPAMOX [Suspect]
     Active Substance: OXAZEPAM
     Dosage: 15 MG TABL., 1 TABLET 3 TIMES A DAY
     Route: 065
  6. SEROQUEL [Suspect]
     Active Substance: QUETIAPINE FUMARATE
     Dosage: 1 - INTERMITTENT; IF NEEDED, MAX 45 MG/DAY
     Route: 048
     Dates: start: 20170824
  7. SEROQUEL [Suspect]
     Active Substance: QUETIAPINE FUMARATE
     Route: 048
  8. SEROQUEL [Suspect]
     Active Substance: QUETIAPINE FUMARATE
     Dosage: 100 MG+100 MG+200 MG EVERY DAY, MAX. 400 MG/DAY.
     Route: 048
  9. OBSIDAN (PROPRANOLOL HYDROCHLORIDE) [Suspect]
     Active Substance: PROPRANOLOL HYDROCHLORIDE
     Dosage: 100MG TABL. 1 CAPSULE/DAY
     Route: 048
     Dates: start: 20171020
  10. AMLODIPINE [Suspect]
     Active Substance: AMLODIPINE BESYLATE
     Dosage: 1 - INTERMITTENT; 10 MG, AS NEEDED (PRN);1 TAB IN THE EVENING
     Route: 048
  11. OPAMOX [Suspect]
     Active Substance: OXAZEPAM
     Dosage: 15MG-30MG TABL, IF NECESSARY (MAX 30MG/DAY, HERE THE SAME THING NORMAL DOSE ALREADY 45MG),
     Route: 065
  12. LORAZEPAM. [Suspect]
     Active Substance: LORAZEPAM
     Dosage: 1 - INTERMITTENT; 4 MG (MAX 8 MG/DAY)
     Route: 065
  13. PANADOL FORTE (ACETAMINOPHEN) [Suspect]
     Active Substance: ACETAMINOPHEN
     Dosage: 1 - INTERMITTENT; IF NEEDED, MAX 3 G/DAY
     Route: 048
     Dates: start: 20171020
  14. SEROQUEL [Suspect]
     Active Substance: QUETIAPINE FUMARATE
     Route: 048
  15. SEROQUEL [Suspect]
     Active Substance: QUETIAPINE FUMARATE
     Route: 048
     Dates: start: 20170922
  16. SEROQUEL [Suspect]
     Active Substance: QUETIAPINE FUMARATE
     Dosage: 50 MG + 50 MG + 200 MG EVERY DAY.ADDITIONALLY 1 TABLET IF NEEDED, MAX 400 MG/DAY.
     Route: 048
     Dates: start: 20170922
  17. SEROQUEL [Suspect]
     Active Substance: QUETIAPINE FUMARATE
     Dosage: 1-2 TABLETS A DAY.IF NEEDED INCREASED MAX 600 MG/DAY
     Route: 048
     Dates: start: 20170505
  18. SEROQUEL [Suspect]
     Active Substance: QUETIAPINE FUMARATE
     Dosage: 1 - INTERMITTENT; 2 TABLETS ONCE A DAY.ADDITIONALLY KETIPINOR (QUETIAPINE); 100 MG TABLET, IF NEE...
     Route: 048
     Dates: start: 20170824
  19. EMGESAN [Suspect]
     Active Substance: MAGNESIUM HYDROXIDE
     Dosage: IF NEEDED 125 MG, MAX 250 MG/DAY.
     Route: 048

REACTIONS (7)
  - Anaemia [Unknown]
  - Live birth [Unknown]
  - Exposure during pregnancy [Unknown]
  - Maternal exposure during pregnancy [Unknown]
  - Premature delivery [Unknown]
  - Caesarean section [Unknown]
  - Malnutrition [Unknown]

NARRATIVE: CASE EVENT DATE: 20171106
